FAERS Safety Report 8759652 (Version 1)
Quarter: 2012Q4

REPORT INFORMATION
  Report Type: 
  Country: CA (occurrence: CA)
  Receive Date: 20120830
  Receipt Date: 20120830
  Transmission Date: 20130627
  Serious: Yes (Life-Threatening, Disabling)
  Sender: FDA-Public Use
  Company Number: CA-TEVA-356280USA

PATIENT
  Age: 74 Year
  Sex: Female
  Weight: 67.19 kg

DRUGS (3)
  1. PRAVASTATIN [Suspect]
     Dosage: 1 Dosage forms Daily;
     Route: 048
  2. COZAAR [Suspect]
     Dosage: 1 Dosage forms Daily;
     Route: 048
  3. SYNTHROID [Concomitant]

REACTIONS (4)
  - Suicidal ideation [Unknown]
  - Feeling drunk [Unknown]
  - Balance disorder [Unknown]
  - Drug ineffective [Unknown]
